FAERS Safety Report 12746523 (Version 1)
Quarter: 2016Q3

REPORT INFORMATION
  Report Type: Spontaneous
  Country: US (occurrence: US)
  Receive Date: 20160915
  Receipt Date: 20160915
  Transmission Date: 20161109
  Serious: Yes (Hospitalization)
  Sender: FDA-Public Use
  Company Number: None

PATIENT
  Age: 16 Year
  Sex: Female

DRUGS (1)
  1. NEXPLANON [Suspect]
     Active Substance: ETONOGESTREL
     Indication: CONTRACEPTION
     Route: 058

REACTIONS (5)
  - Facial paralysis [None]
  - Weight increased [None]
  - Hypoaesthesia [None]
  - Headache [None]
  - Vision blurred [None]

NARRATIVE: CASE EVENT DATE: 20160915
